FAERS Safety Report 11541654 (Version 1)
Quarter: 2015Q3

REPORT INFORMATION
  Report Type: Spontaneous
  Country: US (occurrence: US)
  Receive Date: 20150923
  Receipt Date: 20150923
  Transmission Date: 20151125
  Serious: No
  Sender: FDA-Public Use
  Company Number: US-WATSON-2015-04588

PATIENT
  Sex: Male

DRUGS (1)
  1. TESTOSTERONE CYPIONATE (WATSON LABORATORIES) [Suspect]
     Active Substance: TESTOSTERONE CYPIONATE
     Indication: PRODUCT USED FOR UNKNOWN INDICATION
     Dosage: 1 ML, 1/TWO WEEKS
     Route: 065
     Dates: start: 201412

REACTIONS (3)
  - Drug administration error [Unknown]
  - Injection site erythema [Unknown]
  - Injection site pain [Unknown]
